FAERS Safety Report 23628883 (Version 3)
Quarter: 2024Q2

REPORT INFORMATION
  Report Type: Spontaneous
  Country: CA (occurrence: CA)
  Receive Date: 20240313
  Receipt Date: 20240510
  Transmission Date: 20240716
  Serious: Yes (Other)
  Sender: FDA-Public Use
  Company Number: CA-PFIZER INC-202400061949

PATIENT
  Age: 71 Year
  Sex: Male

DRUGS (33)
  1. GENOTROPIN [Suspect]
     Active Substance: SOMATROPIN
     Indication: Growth hormone deficiency
     Dosage: 400 UG, 1X/DAY (MINIQUICK 0.4 MG)
     Route: 058
     Dates: start: 2024
  2. ASPIRIN COMPOUND [ACETYLSALICYLIC ACID;ASCORBIC ACID] [Concomitant]
     Dosage: 81 MG
  3. BASAGLAR [Concomitant]
     Active Substance: INSULIN GLARGINE
     Dosage: 1 DF, 18 UNITS HS
  4. CANNABIS SATIVA SUBSP. INDICA TOP [Concomitant]
     Active Substance: CANNABIS SATIVA SUBSP. INDICA TOP
     Dosage: UNK
  5. CANDESARTAN [Concomitant]
     Active Substance: CANDESARTAN
     Dosage: 4 MG
  6. CLOBETASOL [Concomitant]
     Active Substance: CLOBETASOL
     Dosage: UNK
  7. HYDROCORTISONE ACETATE [Concomitant]
     Active Substance: HYDROCORTISONE ACETATE
     Dosage: 50 MG, 1X/DAY
  8. CRESTOR [Concomitant]
     Active Substance: ROSUVASTATIN CALCIUM
     Dosage: 10 MG
  9. CYTOMEL [Concomitant]
     Active Substance: LIOTHYRONINE SODIUM
     Dosage: 5 UG
  10. DIAZEPAM [Concomitant]
     Active Substance: DIAZEPAM
     Dosage: 5 MG
  11. DULCOLAX (BISACODYL) [Concomitant]
     Active Substance: BISACODYL
     Dosage: 1 DF
  12. LEVOTHYROXINE [Concomitant]
     Active Substance: LEVOTHYROXINE\LEVOTHYROXINE SODIUM
     Dosage: 100 UG
  13. GLUCOBAY [Concomitant]
     Active Substance: ACARBOSE
     Dosage: 100 MG, 3X/DAY
  14. GABAPENTIN [Concomitant]
     Active Substance: GABAPENTIN
     Dosage: 300 MG
  15. GLUMETZA [Concomitant]
     Active Substance: METFORMIN HYDROCHLORIDE
     Dosage: 500 MG, 3X/DAY
  16. HYDROMORPHONE [Concomitant]
     Active Substance: HYDROMORPHONE
     Dosage: UNK
  17. LANTUS [Concomitant]
     Active Substance: INSULIN GLARGINE
     Dosage: UNK
  18. METOPROLOL [Concomitant]
     Active Substance: METOPROLOL
     Dosage: 25 MG
  19. MAGNESIUM GLYCINATE [Concomitant]
     Active Substance: MAGNESIUM GLYCINATE
     Dosage: 400 MG, 1X/DAY
  20. METFORMIN [Concomitant]
     Active Substance: METFORMIN HYDROCHLORIDE
     Dosage: 500 MG
  21. N-ACETYL CYSTEINE BIOCARE [Concomitant]
     Dosage: UNK
  22. NORVASC [Concomitant]
     Active Substance: AMLODIPINE BESYLATE
     Dosage: 5 MG, 2X/DAY
  23. PERCOCET [Concomitant]
     Active Substance: ACETAMINOPHEN\OXYCODONE HYDROCHLORIDE
     Dosage: 1 DF
  24. OLMESARTAN MEDOXOMIL [Concomitant]
     Active Substance: OLMESARTAN MEDOXOMIL
     Dosage: 20 MG, 2X/DAY
  25. CETIRIZINE HYDROCHLORIDE [Concomitant]
     Active Substance: CETIRIZINE HYDROCHLORIDE
     Dosage: 20 MG
  26. SYNTHROID [Concomitant]
     Active Substance: LEVOTHYROXINE SODIUM
     Dosage: 112 UG
  27. NALOXONE HYDROCHLORIDE\OXYCODONE HYDROCHLORIDE [Concomitant]
     Active Substance: NALOXONE HYDROCHLORIDE\OXYCODONE HYDROCHLORIDE
     Dosage: 1 DF, 2X/DAY (2 TABLETS)
  28. TESTOSTERONE [Concomitant]
     Active Substance: TESTOSTERONE
     Dosage: 1 DF
  29. PANTOPRAZOLE MAGNESIUM [Concomitant]
     Active Substance: PANTOPRAZOLE MAGNESIUM
     Dosage: 40 MG, 2X/DAY
  30. TICAGRELOR [Concomitant]
     Active Substance: TICAGRELOR
     Dosage: 90 MG
  31. VITAMIN B COMPLEX [Concomitant]
     Active Substance: CYANOCOBALAMIN\DEXPANTHENOL\NIACINAMIDE\PYRIDOXINE HYDROCHLORIDE\RIBOFLAVIN 5^-PHOSPHATE SODIUM\THIA
     Dosage: UNK
  32. CHOLECALCIFEROL [Concomitant]
     Active Substance: CHOLECALCIFEROL
     Dosage: 1 DF (60000 UNITS )
  33. ZANTAC [Concomitant]
     Active Substance: RANITIDINE HYDROCHLORIDE
     Dosage: UNK

REACTIONS (2)
  - Fall [Unknown]
  - Fracture [Unknown]
